FAERS Safety Report 5528019-8 (Version None)
Quarter: 2007Q4

REPORT INFORMATION
  Report Type: 
  Country: None (occurrence: None)
  Receive Date: 20071123
  Receipt Date: 20071030
  Transmission Date: 20080405
  Serious: Yes (Life-Threatening)
  Sender: FDA-Public Use
  Company Number: 2007S1011186

PATIENT
  Age: 66 Year
  Sex: Male

DRUGS (5)
  1. FLUCONAZOLE [Suspect]
     Indication: DRUG USE FOR UNKNOWN INDICATION
     Dosage: 200 MG; INTRAVENOUS
     Route: 042
     Dates: start: 20070929
  2. ALLOPURINOL [Concomitant]
  3. MEROPENEM (MEROPENEM) [Concomitant]
  4. RANITIDINE [Concomitant]
  5. TAZOCIN (PIP/TAZO) [Concomitant]

REACTIONS (1)
  - BLOOD PRESSURE DECREASED [None]
